FAERS Safety Report 9219721 (Version 3)
Quarter: 2013Q4

REPORT INFORMATION
  Report Type: Spontaneous
  Country: JP (occurrence: JP)
  Receive Date: 20130409
  Receipt Date: 20131025
  Transmission Date: 20140711
  Serious: Yes (Life-Threatening, Hospitalization)
  Sender: FDA-Public Use
  Company Number: JP-SANOFI-AVENTIS-2013SA024166

PATIENT
  Age: 29 Year
  Sex: Male

DRUGS (5)
  1. MYSLEE [Suspect]
     Indication: INSOMNIA
     Route: 048
  2. MYSLEE [Suspect]
     Indication: INSOMNIA
     Dosage: AROUND 8:00PM
     Route: 048
     Dates: start: 20120610, end: 20120610
  3. CAFFEINE/THIAMINE [Concomitant]
     Dosage: 100 MG 100 TABLETS
     Route: 048
     Dates: start: 20120611, end: 20120611
  4. ANERON [Concomitant]
     Dates: start: 20120611, end: 20120611
  5. DEPAS [Concomitant]
     Route: 048
     Dates: start: 20120610, end: 20120610

REACTIONS (3)
  - Toxicity to various agents [Recovered/Resolved]
  - Intentional overdose [Unknown]
  - Suicide attempt [Unknown]
